FAERS Safety Report 21312526 (Version 1)
Quarter: 2022Q3

REPORT INFORMATION
  Report Type: Spontaneous
  Country: US (occurrence: None)
  Receive Date: 20220909
  Receipt Date: 20220909
  Transmission Date: 20221027
  Serious: No
  Sender: FDA-Public Use
  Company Number: US-ARIS GLOBAL-202206-1168

PATIENT
  Age: 71 Year
  Sex: Male
  Weight: 89 kg

DRUGS (18)
  1. OXERVATE [Suspect]
     Active Substance: CENEGERMIN-BKBJ
     Indication: Neurotrophic keratopathy
     Route: 047
     Dates: start: 20220430
  2. BUMETANIDE [Concomitant]
     Active Substance: BUMETANIDE
     Dosage: 0.25 MG/ML VIAL
  3. VITAMINS [Concomitant]
     Active Substance: VITAMINS
  4. BUMETANIDE [Concomitant]
     Active Substance: BUMETANIDE
  5. BUMETANIDE [Concomitant]
     Active Substance: BUMETANIDE
  6. TOPIRAMATE [Concomitant]
     Active Substance: TOPIRAMATE
  7. SENNA-S [Concomitant]
     Active Substance: DOCUSATE SODIUM\SENNOSIDES
     Dosage: 8.6 MG-50 MG TABLET
  8. JARDIANCE [Concomitant]
     Active Substance: EMPAGLIFLOZIN
  9. HYDROMORPHONE HCL [Concomitant]
     Active Substance: HYDROMORPHONE HYDROCHLORIDE
  10. HYDRALAZINE HCL [Concomitant]
     Active Substance: HYDRALAZINE HYDROCHLORIDE
  11. HUMULIN R U-500 [Concomitant]
     Active Substance: INSULIN HUMAN
     Dosage: 500/ML VIAL
  12. FAMOTIDINE [Concomitant]
     Active Substance: FAMOTIDINE
  13. EPLERENONE [Concomitant]
     Active Substance: EPLERENONE
  14. CHLORTHALIDONE [Concomitant]
     Active Substance: CHLORTHALIDONE
  15. CARVEDILOL [Concomitant]
     Active Substance: CARVEDILOL
  16. ATORVASTATIN CALCIUM [Concomitant]
     Active Substance: ATORVASTATIN CALCIUM
  17. ALLOPURINOL [Concomitant]
     Active Substance: ALLOPURINOL
  18. ARTIFICIAL TEARS [Concomitant]
     Active Substance: GLYCERIN\HYPROMELLOSES\POLYETHYLENE GLYCOL 400

REACTIONS (2)
  - Eye irritation [Recovered/Resolved]
  - Eye pain [Recovered/Resolved]

NARRATIVE: CASE EVENT DATE: 20220622
